FAERS Safety Report 6170679-5 (Version None)
Quarter: 2009Q2

REPORT INFORMATION
  Report Type: 
  Country: None (occurrence: None)
  Receive Date: 20090428
  Receipt Date: 20090423
  Transmission Date: 20091009
  Serious: Yes (Disabling)
  Sender: FDA-Public Use
  Company Number: FR-WYE-G03245109

PATIENT
  Sex: Male

DRUGS (4)
  1. TORISEL [Suspect]
     Indication: RENAL CANCER METASTATIC
     Dosage: UNKNOWN
     Route: 042
     Dates: start: 20090123, end: 20090217
  2. KARDEGIC [Concomitant]
     Route: 048
  3. FONZYLANE [Concomitant]
     Dosage: UNKNOWN
     Route: 048
  4. AVASTIN [Suspect]
     Indication: RENAL CANCER METASTATIC
     Dosage: UNKNOWN
     Route: 058
     Dates: start: 20090123, end: 20090123

REACTIONS (3)
  - CONDITION AGGRAVATED [None]
  - EXTREMITY NECROSIS [None]
  - PERIPHERAL ISCHAEMIA [None]
